FAERS Safety Report 5289242-3 (Version None)
Quarter: 2007Q2

REPORT INFORMATION
  Report Type: 
  Country: None (occurrence: None)
  Receive Date: 20070403
  Receipt Date: 20070403
  Transmission Date: 20071010
  Serious: Yes (Other)
  Sender: FDA-Public Use
  Company Number: None

PATIENT
  Sex: Female
  Weight: 45.4 kg

DRUGS (2)
  1. CEFEPIME [Suspect]
     Indication: DECUBITUS ULCER
     Dosage: 2 GRAM EVERY 12 HOUR IV BOLUS
     Route: 040
     Dates: start: 20070304, end: 20070330
  2. VANCOMYCIN [Suspect]
     Indication: OSTEOMYELITIS
     Dosage: 1 GRAM EVERY 24 HOUR IV DRIP
     Route: 041
     Dates: start: 20070304, end: 20070330

REACTIONS (2)
  - DIARRHOEA [None]
  - DIZZINESS [None]
